FAERS Safety Report 20676919 (Version 1)
Quarter: 2022Q2

REPORT INFORMATION
  Report Type: Report from Study
  Country: US (occurrence: None)
  Receive Date: 20220406
  Receipt Date: 20220406
  Transmission Date: 20220721
  Serious: Yes (Other)
  Sender: FDA-Public Use
  Company Number: US-ROCHE-2784397

PATIENT
  Age: 51 Year
  Sex: Male
  Weight: 78 kg

DRUGS (25)
  1. RANIBIZUMAB [Suspect]
     Active Substance: RANIBIZUMAB
     Indication: Diabetic retinal oedema
     Dosage: DRUG DOSE FIRST ADMINISTERED IS 10 MG/ML?DOSE LAST STUDY DRUG ADMIN PRIOR AE AND SAE 100 MG/ML?START
     Route: 050
     Dates: start: 20191216
  2. RANIBIZUMAB [Suspect]
     Active Substance: RANIBIZUMAB
  3. RANIBIZUMAB [Suspect]
     Active Substance: RANIBIZUMAB
  4. RANIBIZUMAB [Suspect]
     Active Substance: RANIBIZUMAB
  5. RANIBIZUMAB [Suspect]
     Active Substance: RANIBIZUMAB
  6. RANIBIZUMAB [Suspect]
     Active Substance: RANIBIZUMAB
  7. RANIBIZUMAB [Concomitant]
     Active Substance: RANIBIZUMAB
     Indication: Diabetic retinal oedema
     Route: 050
  8. METFORMIN [Concomitant]
     Active Substance: METFORMIN HYDROCHLORIDE
     Indication: Diabetes mellitus
     Route: 048
     Dates: start: 201806
  9. PREDNISOLONE [Concomitant]
     Active Substance: PREDNISOLONE
     Dosage: MEDICATION STOP DATE 10-MAR-2021
     Route: 047
     Dates: start: 20210303, end: 20210310
  10. PREDNISOLONE [Concomitant]
     Active Substance: PREDNISOLONE
     Dosage: LIQUID
     Route: 047
     Dates: start: 20210310, end: 20210317
  11. PREDNISOLONE [Concomitant]
     Active Substance: PREDNISOLONE
     Dosage: LIQUID
     Route: 047
     Dates: start: 20210317, end: 20210324
  12. PREDNISOLONE [Concomitant]
     Active Substance: PREDNISOLONE
     Dosage: LIQUID, MEDICATION STOP DATE 31-MAR-2021
     Route: 047
     Dates: start: 20210324, end: 20210331
  13. MOXIFLOXACIN [Concomitant]
     Active Substance: MOXIFLOXACIN
     Dosage: LIQUID
     Route: 047
     Dates: start: 20210303, end: 20210310
  14. MAXITROL [Concomitant]
     Active Substance: DEXAMETHASONE\NEOMYCIN SULFATE\POLYMYXIN B SULFATE
     Dosage: LIQUID
     Route: 047
     Dates: start: 20210303, end: 20210310
  15. ALOGLIPTIN [Concomitant]
     Active Substance: ALOGLIPTIN
     Indication: Diabetes mellitus
     Dates: start: 201806
  16. ATORVASTATIN [Concomitant]
     Active Substance: ATORVASTATIN
     Indication: Hyperlipidaemia
     Dates: start: 201806
  17. CIALIS [Concomitant]
     Active Substance: TADALAFIL
     Indication: Erectile dysfunction
     Dates: start: 201806
  18. JARDIANCE [Concomitant]
     Active Substance: EMPAGLIFLOZIN
     Indication: Diabetes mellitus
     Dates: start: 201806
  19. LISINOPRIL [Concomitant]
     Active Substance: LISINOPRIL
     Indication: Hypertension
     Dates: start: 201806, end: 20210428
  20. ASPIRIN [Concomitant]
     Active Substance: ASPIRIN
     Indication: Cardiovascular event prophylaxis
     Dates: start: 201806, end: 20210223
  21. ASPIRIN [Concomitant]
     Active Substance: ASPIRIN
     Dates: start: 20210428
  22. RYBELSUS [Concomitant]
     Active Substance: SEMAGLUTIDE
     Indication: Type 2 diabetes mellitus
     Route: 048
     Dates: start: 20210630
  23. JANUVIA [Concomitant]
     Active Substance: SITAGLIPTIN PHOSPHATE
     Indication: Type 2 diabetes mellitus
     Dates: start: 2019, end: 20210630
  24. CIPROFLOXACIN [Concomitant]
     Active Substance: CIPROFLOXACIN
     Indication: Prophylaxis
     Dates: start: 20210823, end: 20210825
  25. CIPROFLOXACIN [Concomitant]
     Active Substance: CIPROFLOXACIN
     Dates: start: 20220207, end: 20220209

REACTIONS (1)
  - Vitreous haemorrhage [Not Recovered/Not Resolved]

NARRATIVE: CASE EVENT DATE: 20210303
